FAERS Safety Report 25418080 (Version 1)
Quarter: 2025Q2

REPORT INFORMATION
  Report Type: Spontaneous
  Country: CN (occurrence: CN)
  Receive Date: 20250610
  Receipt Date: 20250610
  Transmission Date: 20250716
  Serious: Yes (Hospitalization, Other)
  Sender: Haleon PLC
  Company Number: CN-HALEON-2246142

PATIENT
  Age: 25 Year
  Sex: Female

DRUGS (3)
  1. IBUPROFEN [Suspect]
     Active Substance: IBUPROFEN
     Indication: Pyrexia
     Dates: start: 20250608
  2. OSELTAMIVIR PHOSPHATE [Suspect]
     Active Substance: OSELTAMIVIR PHOSPHATE
     Indication: Pyrexia
     Dates: start: 20250608
  3. HERBALS [Suspect]
     Active Substance: HERBALS
     Indication: Pyrexia
     Dates: start: 20250608

REACTIONS (12)
  - Drug hypersensitivity [Not Recovered/Not Resolved]
  - Ocular hyperaemia [Recovering/Resolving]
  - Swelling [Not Recovered/Not Resolved]
  - Dyspnoea [Not Recovered/Not Resolved]
  - Pharyngeal swelling [Not Recovered/Not Resolved]
  - Ear pain [Not Recovered/Not Resolved]
  - Eye disorder [Not Recovered/Not Resolved]
  - Laryngeal oedema [Not Recovered/Not Resolved]
  - Erythema [Not Recovered/Not Resolved]
  - Generalised oedema [Not Recovered/Not Resolved]
  - Urticaria [Not Recovered/Not Resolved]
  - Eye swelling [Not Recovered/Not Resolved]

NARRATIVE: CASE EVENT DATE: 20250608
